FAERS Safety Report 6177463-7 (Version None)
Quarter: 2009Q2

REPORT INFORMATION
  Report Type: 
  Country: None (occurrence: None)
  Receive Date: 20090501
  Receipt Date: 20090501
  Transmission Date: 20091009
  Serious: Yes (Hospitalization)
  Sender: FDA-Public Use
  Company Number: None

PATIENT
  Age: 89 Year
  Sex: Male

DRUGS (15)
  1. ASPIRIN [Suspect]
     Indication: CORONARY ARTERY DISEASE
     Dosage: 325MG PO QD
     Route: 048
  2. BISACODYL [Concomitant]
  3. CA + D [Concomitant]
  4. CARBIDOPA + LEVODOPA [Concomitant]
  5. DIGOXIN [Concomitant]
  6. DONEPEZIL HCL [Concomitant]
  7. FINASTERIDE [Concomitant]
  8. GABAPENTIN [Concomitant]
  9. FUROSEMIDE [Concomitant]
  10. LISINOPRIL [Concomitant]
  11. METOPROLOL [Concomitant]
  12. MIRTAZAPINE [Concomitant]
  13. OMEPRAZOLE [Concomitant]
  14. SIMVASTATIN [Concomitant]
  15. TERAZOSIN HCL [Concomitant]

REACTIONS (1)
  - RECTAL HAEMORRHAGE [None]
